FAERS Safety Report 5888309-6 (Version None)
Quarter: 2008Q3

REPORT INFORMATION
  Report Type: 
  Country: None (occurrence: None)
  Receive Date: 20080917
  Receipt Date: 20080908
  Transmission Date: 20090109
  Serious: Yes (Hospitalization)
  Sender: FDA-Public Use
  Company Number: US024554

PATIENT
  Age: 67 Year
  Sex: Male
  Weight: 62 kg

DRUGS (3)
  1. ARSENIC TRIOXIDE [Suspect]
     Indication: MYELODYSPLASTIC SYNDROME
     Dosage: 3RD CYCLE INTRAVENOUS DRIP
     Route: 041
     Dates: start: 20080723, end: 20080808
  2. ZELITREX [Concomitant]
  3. POTASSIUM CHLORIDE [Concomitant]

REACTIONS (2)
  - BRONCHOPNEUMONIA [None]
  - RESPIRATORY DEPRESSION [None]
